FAERS Safety Report 7041041-8 (Version None)
Quarter: 2010Q4

REPORT INFORMATION
  Report Type: 
  Country: None (occurrence: None)
  Receive Date: 20101013
  Receipt Date: 20101006
  Transmission Date: 20110411
  Serious: Yes (Hospitalization)
  Sender: FDA-Public Use
  Company Number: CH-NOVOPROD-316146

PATIENT
  Age: 73 Year
  Sex: Female

DRUGS (10)
  1. LEVEMIR [Suspect]
     Indication: TYPE 1 DIABETES MELLITUS
     Dosage: S.C.
     Route: 058
     Dates: end: 20100828
  2. LEVEMIR [Suspect]
     Dosage: UNK
  3. HUMALOG [Suspect]
     Dosage: S.C.
     Route: 058
     Dates: end: 20100828
  4. DILATREND [Suspect]
     Dosage: 6.5 MG, BID
     Route: 048
  5. ACETYLSALICYLIC ACID SRT [Suspect]
     Dosage: 1 DF, QD
     Route: 048
  6. MODURETIC 5-50 [Concomitant]
     Dosage: ORAL
     Route: 048
  7. ENALAPRIL MALEATE [Suspect]
     Dosage: 1 DF, QD
     Route: 048
  8. NITRODERM [Concomitant]
     Dosage: TOPICAL
  9. FOSAMAX [Concomitant]
     Dosage: ORAL
     Route: 048
  10. LEVOTHYROXINE [Concomitant]
     Dosage: ORAL
     Route: 048

REACTIONS (2)
  - ASTHENIA [None]
  - HYPOGLYCAEMIC UNCONSCIOUSNESS [None]
